FAERS Safety Report 12285755 (Version 1)
Quarter: 2016Q2

REPORT INFORMATION
  Report Type: Spontaneous
  Country: GB (occurrence: GB)
  Receive Date: 20160420
  Receipt Date: 20160420
  Transmission Date: 20160815
  Serious: Yes (Hospitalization)
  Sender: FDA-Public Use
  Company Number: GB-GLAXOSMITHKLINE-GB2016050085

PATIENT
  Age: 80 Year
  Sex: Female

DRUGS (8)
  1. RELVAR ELLIPTA [Suspect]
     Active Substance: FLUTICASONE FUROATE\VILANTEROL TRIFENATATE
     Indication: CHRONIC OBSTRUCTIVE PULMONARY DISEASE
     Dosage: 1 DF, QD, 92/22 MICROGRAMS
     Route: 055
     Dates: start: 20160325, end: 20160328
  2. SERETIDE [Concomitant]
     Active Substance: FLUTICASONE PROPIONATE\SALMETEROL XINAFOATE
     Indication: CHRONIC OBSTRUCTIVE PULMONARY DISEASE
     Dosage: 2 PUFFS
     Route: 055
     Dates: end: 20160329
  3. AMLODIPINE [Concomitant]
     Active Substance: AMLODIPINE BESYLATE
     Indication: HYPERTENSION
     Dosage: EVERY MORNING - ONGOING
     Route: 048
  4. PREDNISOLONE. [Concomitant]
     Active Substance: PREDNISOLONE
     Indication: CHRONIC OBSTRUCTIVE PULMONARY DISEASE
     Dosage: TAPERING DOSE - ONGOING
     Route: 048
     Dates: start: 20160318
  5. CREON [Concomitant]
     Active Substance: PANCRELIPASE AMYLASE\PANCRELIPASE LIPASE\PANCRELIPASE PROTEASE
     Indication: PANCREATITIS
     Dosage: ONGOING
     Route: 048
  6. OMEPRAZOLE. [Concomitant]
     Active Substance: OMEPRAZOLE
     Dosage: 20 MG, QD, EVERY MORNING, STEROID COVER - ONGOING
     Route: 048
     Dates: start: 20160319
  7. INCRUSE ELLIPTA [Suspect]
     Active Substance: UMECLIDINIUM BROMIDE
     Indication: CHRONIC OBSTRUCTIVE PULMONARY DISEASE
     Dosage: 55 ?G, QD
     Route: 055
     Dates: start: 20160315, end: 20160328
  8. CARBOCISTEINE [Concomitant]
     Active Substance: CARBOCYSTEINE
     Indication: CHRONIC OBSTRUCTIVE PULMONARY DISEASE
     Dosage: ONGOING
     Route: 048

REACTIONS (2)
  - Rash [Recovering/Resolving]
  - Throat tightness [Recovering/Resolving]

NARRATIVE: CASE EVENT DATE: 20160327
